FAERS Safety Report 9631583 (Version 2)
Quarter: 2014Q1

REPORT INFORMATION
  Report Type: Spontaneous
  Country: AU (occurrence: None)
  Receive Date: 20131016
  Receipt Date: 20140321
  Transmission Date: 20141002
  Serious: Yes (Other)
  Sender: FDA-Public Use
  Company Number: VAL_02768_2013

PATIENT
  Age: 38 Year
  Sex: Male

DRUGS (11)
  1. METOPROLOL [Suspect]
     Indication: PRODUCT USED FOR UNKNOWN INDICATION
  2. CERTICAN (CERTICAN) (NOT SPECIFIED) [Suspect]
     Indication: PRODUCT USED FOR UNKNOWN INDICATION
     Dates: start: 201301
  3. NEXIUM [Concomitant]
  4. PREDNISOLONE [Concomitant]
  5. ACICLOVIR [Concomitant]
  6. LERCANIDIPINE [Concomitant]
  7. RANTIDINE [Concomitant]
  8. ERYTHROPOIETIN [Concomitant]
  9. METHOTREXATE [Concomitant]
  10. RITUXIMAB [Concomitant]
  11. BACTRIM [Concomitant]

REACTIONS (7)
  - Dry skin [None]
  - Vision blurred [None]
  - Hypoaesthesia [None]
  - Abdominal pain [None]
  - Non-Hodgkin^s lymphoma [None]
  - Vision blurred [None]
  - Eye pruritus [None]
